FAERS Safety Report 12240030 (Version 1)
Quarter: 2016Q2

REPORT INFORMATION
  Report Type: Spontaneous
  Country: US (occurrence: US)
  Receive Date: 20160405
  Receipt Date: 20160405
  Transmission Date: 20160815
  Serious: No
  Sender: FDA-Public Use
  Company Number: US-ROCHE-1705938

PATIENT
  Sex: Female

DRUGS (3)
  1. ALECENSA [Suspect]
     Active Substance: ALECTINIB HYDROCHLORIDE
     Indication: NON-SMALL CELL LUNG CANCER
     Dosage: INITIAL STARTING DOSE 600MG, INCREASED TO 1200MG
     Route: 065
     Dates: start: 20151222
  2. ALECENSA [Suspect]
     Active Substance: ALECTINIB HYDROCHLORIDE
     Dosage: INITIAL STARTING DOSE 600MG, INCREASED TO 1200MG
     Route: 065
     Dates: start: 20151225
  3. ALECENSA [Suspect]
     Active Substance: ALECTINIB HYDROCHLORIDE
     Dosage: INITIAL STARTING DOSE 600MG, INCREASED TO 1200MG
     Route: 065
     Dates: start: 20151225

REACTIONS (2)
  - Petechiae [Not Recovered/Not Resolved]
  - Rash [Not Recovered/Not Resolved]
